FAERS Safety Report 5345657-6 (Version None)
Quarter: 2007Q2

REPORT INFORMATION
  Report Type: 
  Country: None (occurrence: None)
  Receive Date: 20070605
  Receipt Date: 20061228
  Transmission Date: 20071010
  Serious: No
  Sender: FDA-Public Use
  Company Number: US-ASTRAZENECA-2007UW00038

PATIENT
  Age: 58 Year
  Sex: Female
  Weight: 78.9 kg

DRUGS (20)
  1. PRILOSEC [Suspect]
     Indication: GASTROOESOPHAGEAL REFLUX DISEASE
     Route: 048
  2. LEVSIN [Concomitant]
  3. CARAFATE [Concomitant]
  4. LIDODERM [Concomitant]
  5. OXYCONTIN [Concomitant]
  6. LYRICA [Concomitant]
  7. VALIUM [Concomitant]
  8. DIGESTIVE ADVANTAGE FLORA-Q [Concomitant]
  9. TRAZODONE HCL [Concomitant]
  10. EFFEXOR [Concomitant]
  11. TIGAN [Concomitant]
  12. ZOFRAN [Concomitant]
  13. GLYCERIN SUPPOSITORIES [Concomitant]
  14. NITROFURANTION [Concomitant]
  15. ALLEGRA [Concomitant]
  16. PROBIOTIC LACTOBACILLUS [Concomitant]
  17. NITROGLYCERIN [Concomitant]
  18. DITROPAN [Concomitant]
  19. ASPIRIN [Concomitant]
  20. GINGERAID [Concomitant]

REACTIONS (2)
  - ARTHROPATHY [None]
  - BONE DISORDER [None]
